FAERS Safety Report 9724804 (Version 1)
Quarter: 2013Q4

REPORT INFORMATION
  Report Type: Spontaneous
  Country: GB (occurrence: GB)
  Receive Date: 20131202
  Receipt Date: 20131202
  Transmission Date: 20140711
  Serious: Yes (Other)
  Sender: FDA-Public Use
  Company Number: GB-009507513-1311GBR011063

PATIENT
  Age: 54 Year
  Sex: Male

DRUGS (5)
  1. RIBAVIRIN [Suspect]
     Indication: HEPATITIS C
     Route: 065
  2. INTERFERON ALFA-2B [Suspect]
     Indication: HEPATITIS C
     Route: 065
  3. RALTEGRAVIR POTASSIUM [Suspect]
     Route: 065
  4. TELAPREVIR [Suspect]
     Indication: HEPATITIS C
     Dosage: 750 MG, Q8H
     Route: 065
  5. TRUVADA [Suspect]
     Route: 065

REACTIONS (4)
  - Depression [Unknown]
  - Fatigue [Unknown]
  - Rash [Unknown]
  - Off label use [Unknown]
